FAERS Safety Report 19402983 (Version 2)
Quarter: 2021Q2

REPORT INFORMATION
  Report Type: Spontaneous
  Country: SE (occurrence: SE)
  Receive Date: 20210610
  Receipt Date: 20210611
  Transmission Date: 20210717
  Serious: Yes (Death, Hospitalization, Other)
  Sender: FDA-Public Use
  Company Number: SE-TEVA-2021-SE-1920237

PATIENT
  Age: 82 Year
  Sex: Male

DRUGS (7)
  1. VANCOMYCIN ORION [Suspect]
     Active Substance: VANCOMYCIN HYDROCHLORIDE
     Indication: ENTEROCOCCAL INFECTION
     Dosage: 1000 MG 1 G X3; UNIT DOSE: 3000MG
     Route: 042
     Dates: start: 20210430, end: 20210505
  2. ALLOPURINOL NORDIC DRUGS [Concomitant]
     Active Substance: ALLOPURINOL
     Dosage: 100 MILLIGRAM DAILY; 100 MG 1X1
     Dates: start: 20200201, end: 20210510
  3. GABAPENTIN ACTAVIS [Suspect]
     Active Substance: GABAPENTIN
     Dosage: 300 MG 1X2; UNIT DOSE: 600MG
     Route: 048
     Dates: start: 20200512, end: 20210509
  4. VANCOMYCIN ORION [Suspect]
     Active Substance: VANCOMYCIN HYDROCHLORIDE
     Indication: DEVICE RELATED INFECTION
  5. ATORVASTATIN SUN [Suspect]
     Active Substance: ATORVASTATIN
     Dosage: 80 MILLIGRAM DAILY; 80 MG 1X1
     Route: 048
     Dates: start: 20181224, end: 20210510
  6. NORSPAN 25 MIKROGRAM/TIMME DEPOTPLASTER [Concomitant]
     Dosage: 25 MICROGRAMS / HOUR 1 PATCH IS CHANGED EVERY 7 DAYS; DEPOT PATCHES
     Route: 003
     Dates: start: 20210107
  7. FUROSEMID TEVA 40 MG TABLETT [Concomitant]
     Dosage: 40 MG 2+2+0+0; UNIT DOSE: 160MG
     Route: 048
     Dates: start: 20201211, end: 20210510

REACTIONS (2)
  - Myoclonus [Fatal]
  - Acute kidney injury [Fatal]

NARRATIVE: CASE EVENT DATE: 202105
